FAERS Safety Report 6809833-5 (Version None)
Quarter: 2010Q2

REPORT INFORMATION
  Report Type: 
  Country: None (occurrence: None)
  Receive Date: 20100625
  Receipt Date: 20100614
  Transmission Date: 20101027
  Serious: Yes (Death, Hospitalization, Other)
  Sender: FDA-Public Use
  Company Number: 010174

PATIENT
  Age: 30 Year
  Sex: Male

DRUGS (4)
  1. BUSULFEX [Suspect]
     Indication: STEM CELL TRANSPLANT
     Dosage: 16 MG/KG,
  2. CYCLOPHOSPHAMIDE [Concomitant]
  3. ATG (ANTILYMPHOCYTE IMMUNOGLOBULIN (HORSE)) [Concomitant]
  4. CYCLOSPORINE [Concomitant]

REACTIONS (25)
  - ACUTE GRAFT VERSUS HOST DISEASE IN SKIN [None]
  - ASPARTATE AMINOTRANSFERASE INCREASED [None]
  - BRONCHIOLITIS [None]
  - CHRONIC GRAFT VERSUS HOST DISEASE [None]
  - CYSTITIS HAEMORRHAGIC [None]
  - CYTOMEGALOVIRUS INFECTION [None]
  - DIARRHOEA [None]
  - DRUG TOXICITY [None]
  - GAMMA-GLUTAMYLTRANSFERASE INCREASED [None]
  - GLOMERULONEPHRITIS MINIMAL LESION [None]
  - HEPATIC ENZYME INCREASED [None]
  - HYPERCHOLESTEROLAEMIA [None]
  - HYPERTRIGLYCERIDAEMIA [None]
  - HYPOALBUMINAEMIA [None]
  - HYPOPROTEINAEMIA [None]
  - ISCHAEMIC STROKE [None]
  - KIDNEY FIBROSIS [None]
  - LUNG INFECTION [None]
  - MUCOSAL INFLAMMATION [None]
  - NEPHROTIC SYNDROME [None]
  - OEDEMA PERIPHERAL [None]
  - POST PROCEDURAL COMPLICATION [None]
  - RENAL TUBULAR ATROPHY [None]
  - THROMBOCYTOPENIA [None]
  - WEIGHT INCREASED [None]
